FAERS Safety Report 20140078 (Version 1)
Quarter: 2021Q4

REPORT INFORMATION
  Report Type: Report from Study
  Country: FR (occurrence: FR)
  Receive Date: 20211202
  Receipt Date: 20211202
  Transmission Date: 20220303
  Serious: Yes (Other)
  Sender: FDA-Public Use
  Company Number: FR-PFIZER INC-202101613990

PATIENT
  Age: 35 Year
  Sex: Female

DRUGS (2)
  1. PACLITAXEL [Suspect]
     Active Substance: PACLITAXEL
     Indication: Hormone receptor positive breast cancer
     Dosage: 1-H INTRAVENOUS INFUSION AT DAY 1, 8, AND 15 EVERY 21 DAYS
     Route: 042
  2. INVESTIGATIONAL PRODUCT [Suspect]
     Active Substance: INVESTIGATIONAL PRODUCT
     Indication: Hormone receptor positive breast cancer
     Dosage: 500 MG, 1X/DAY
     Route: 048

REACTIONS (2)
  - Hallucination [Unknown]
  - Delirium [Unknown]
